FAERS Safety Report 8232799-0 (Version None)
Quarter: 2012Q1

REPORT INFORMATION
  Report Type: 
  Country: None (occurrence: None)
  Receive Date: 20120323
  Receipt Date: 20120314
  Transmission Date: 20120608
  Serious: Yes (Life-Threatening, Hospitalization, Other)
  Sender: FDA-Public Use
  Company Number: US-RB-038360-12

PATIENT
  Age: 36 Year
  Sex: Male

DRUGS (4)
  1. AMBIEN [Concomitant]
     Indication: INSOMNIA
     Dosage: DOSAGE DETAILS NOT PROVIDED
     Route: 065
  2. SUBOXONE [Suspect]
     Indication: DRUG DEPENDENCE
     Route: 060
     Dates: start: 20090101
  3. SUBOXONE [Suspect]
     Route: 060
  4. SUBOXONE [Suspect]
     Dosage: VARIOUS DOSES, DISCONTINUED ON SEVERAL OCCASIONS
     Route: 060

REACTIONS (5)
  - SUICIDAL IDEATION [None]
  - UNDERDOSE [None]
  - INSOMNIA [None]
  - ANXIETY [None]
  - DRUG WITHDRAWAL SYNDROME [None]
